FAERS Safety Report 9391407 (Version 1)
Quarter: 2013Q3

REPORT INFORMATION
  Report Type: Spontaneous
  Country: AU (occurrence: AU)
  Receive Date: 20130709
  Receipt Date: 20130712
  Transmission Date: 20140515
  Serious: Yes (Death, Other)
  Sender: FDA-Public Use
  Company Number: AU-BAYER-2013-081957

PATIENT
  Age: 47 Year
  Sex: Female

DRUGS (7)
  1. NEXAVAR [Suspect]
     Indication: NON-SMALL CELL LUNG CANCER
     Dosage: 400 MG, BID
     Dates: start: 20120806, end: 20121003
  2. NEXAVAR [Suspect]
     Indication: NON-SMALL CELL LUNG CANCER
     Dosage: 200 MG AT MORNING, 400 MG AT NIGHT
     Dates: start: 2012, end: 2012
  3. NEXAVAR [Suspect]
     Indication: NON-SMALL CELL LUNG CANCER
     Dosage: 200 MG, BID
     Dates: start: 2012
  4. NEXAVAR [Suspect]
     Indication: NON-SMALL CELL LUNG CANCER
     Dosage: UNK
     Dates: end: 20130306
  5. PREDNISOLONE [Concomitant]
     Dosage: 10-15 MG DAILY
  6. VENTOLIN [Concomitant]
     Dosage: PRN
  7. MIRTAZAPINE [Concomitant]
     Dosage: 15-30 MG DAILY

REACTIONS (4)
  - Non-small cell lung cancer [Fatal]
  - Pneumonia [None]
  - Palmar-plantar erythrodysaesthesia syndrome [None]
  - Fatigue [None]
